FAERS Safety Report 10177260 (Version 1)
Quarter: 2014Q2

REPORT INFORMATION
  Report Type: Spontaneous
  Country: ES (occurrence: ES)
  Receive Date: 20140516
  Receipt Date: 20140516
  Transmission Date: 20141212
  Serious: Yes (Hospitalization, Other)
  Sender: FDA-Public Use
  Company Number: PHHY2014ES056465

PATIENT
  Age: 65 Year
  Sex: Female

DRUGS (3)
  1. METHOTREXATE [Suspect]
     Indication: RHEUMATOID ARTHRITIS
     Dosage: 20 MG, QD
  2. IBUPROFEN [Interacting]
     Indication: RHEUMATOID ARTHRITIS
     Dosage: 600 MG, TID
  3. PREDNISONE [Concomitant]
     Indication: RHEUMATOID ARTHRITIS
     Dosage: 10 MG, QD

REACTIONS (11)
  - Oedema peripheral [Unknown]
  - Pain in extremity [Unknown]
  - Skin hyperpigmentation [Recovered/Resolved]
  - Skin ulcer [Recovered/Resolved]
  - Pancytopenia [Recovered/Resolved]
  - Pyrexia [Unknown]
  - Mucosal inflammation [Unknown]
  - Erythema [Recovered/Resolved]
  - Drug interaction [Unknown]
  - Overdose [Unknown]
  - Incorrect dosage administered [Unknown]
